FAERS Safety Report 9653329 (Version 3)
Quarter: 2013Q4

REPORT INFORMATION
  Report Type: Spontaneous
  Country: US (occurrence: US)
  Receive Date: 20131029
  Receipt Date: 20131031
  Transmission Date: 20140711
  Serious: Yes (Other)
  Sender: FDA-Public Use
  Company Number: US-ABBVIE-13P-163-1090215-00

PATIENT
  Age: 36 Year
  Sex: Female

DRUGS (4)
  1. SYNTHROID [Suspect]
     Indication: AUTOIMMUNE THYROIDITIS
     Dates: start: 2011, end: 201309
  2. SYNTHROID [Suspect]
     Dates: start: 201310
  3. SYNTHROID [Suspect]
     Indication: AUTOIMMUNE THYROIDITIS
     Dates: start: 201309, end: 201310
  4. PRENATAL VITAMINS [Concomitant]
     Indication: VITAMIN SUPPLEMENTATION
     Dates: start: 201302

REACTIONS (7)
  - Placenta praevia haemorrhage [Recovered/Resolved]
  - Hunger [Not Recovered/Not Resolved]
  - Nausea [Unknown]
  - Thyroid function test abnormal [Not Recovered/Not Resolved]
  - Haemorrhage [Recovered/Resolved]
  - Suppressed lactation [Not Recovered/Not Resolved]
  - Uterine atony [Recovered/Resolved]
